FAERS Safety Report 8917766 (Version 1)
Quarter: 2012Q4

REPORT INFORMATION
  Report Type: 
  Country: US (occurrence: US)
  Receive Date: 20121120
  Receipt Date: 20121120
  Transmission Date: 20130627
  Serious: Yes (Other)
  Sender: FDA-Public Use
  Company Number: US-INCYTE CORPORATION-2012IN001515

PATIENT
  Age: 67 Year
  Sex: Female
  Weight: 98.78 kg

DRUGS (11)
  1. JAKAFI [Suspect]
     Indication: MYELOFIBROSIS
     Dosage: 15 mg, bid
     Route: 048
     Dates: start: 20120809
  2. ALLOPURINOL [Concomitant]
     Dosage: 300 mg, qd
     Route: 048
  3. ZESTORETIC [Concomitant]
     Dosage: 20/12.5 mg, bid
  4. LASIX [Concomitant]
     Dosage: 20 mg, qd
     Route: 048
  5. CALCIUM [Concomitant]
     Dosage: 600 mg, bid
  6. VITAMIN E [Concomitant]
     Dosage: 400 IU, qd
  7. MULTIVITAMINS [Concomitant]
     Dosage: One, qd
  8. METOPROLOL TARTRATE [Concomitant]
     Indication: HYPERTENSION
     Dosage: 50 mg, bid
     Route: 048
  9. VITAMIN D [Concomitant]
     Dosage: 400 IU, qd
  10. PERCOCET [Concomitant]
     Indication: PAIN
     Dosage: 5/325MG; take 2 tabs one hour prior to biopsy and then 1 Q6 hrs prn, pain
  11. SYNTHROID [Concomitant]
     Dosage: 75 mcg, qd
     Route: 048

REACTIONS (3)
  - Blood product transfusion dependent [Not Recovered/Not Resolved]
  - White blood cell count increased [Unknown]
  - Headache [Recovered/Resolved]
